FAERS Safety Report 7636122-1 (Version None)
Quarter: 2011Q3

REPORT INFORMATION
  Report Type: 
  Country: None (occurrence: None)
  Receive Date: 20110719
  Receipt Date: 20110419
  Transmission Date: 20111222
  Serious: Yes (Hospitalization)
  Sender: FDA-Public Use
  Company Number: CIP11001009

PATIENT
  Age: 64 Year
  Sex: Female

DRUGS (2)
  1. ACTONEL [Suspect]
     Indication: OSTEOPOROSIS
     Dosage: 17.5 MG ONCE WEEKLY, ORAL
     Route: 048
     Dates: start: 20070921
  2. PREDNISOLONE [Concomitant]

REACTIONS (4)
  - PATHOLOGICAL FRACTURE [None]
  - FEMUR FRACTURE [None]
  - PAIN IN EXTREMITY [None]
  - FALL [None]
